FAERS Safety Report 5031915-1 (Version None)
Quarter: 2006Q2

REPORT INFORMATION
  Report Type: 
  Country: None (occurrence: None)
  Receive Date: 20060619
  Receipt Date: 20060605
  Transmission Date: 20061013
  Serious: Yes (Life-Threatening)
  Sender: FDA-Public Use
  Company Number: GXKR2006DE03177

PATIENT
  Age: 59 Year
  Sex: Male

DRUGS (3)
  1. AMIODARONE (NGX) (AMIODARONE) 21 MG/ML [Suspect]
     Indication: ATRIAL FIBRILLATION
     Dosage: SEE IMAGE
     Route: 042
  2. METOPROLOL (NGX) (METOPROLOL) [Suspect]
     Indication: ATRIAL FIBRILLATION
     Dosage: 100 MG
  3. DIGITOXIN [Suspect]
     Indication: ATRIAL FIBRILLATION
     Dosage: 0.4 MG INTRAVENOUS
     Route: 042

REACTIONS (3)
  - ATRIAL FIBRILLATION [None]
  - DRUG INTERACTION [None]
  - TORSADE DE POINTES [None]
